FAERS Safety Report 6246533-7 (Version None)
Quarter: 2009Q2

REPORT INFORMATION
  Report Type: 
  Country: None (occurrence: None)
  Receive Date: 20090624
  Receipt Date: 20090624
  Transmission Date: 20091009
  Serious: Yes (Other)
  Sender: FDA-Public Use
  Company Number: None

PATIENT
  Age: 24 Year
  Sex: Female

DRUGS (1)
  1. MIRENA [Suspect]
     Indication: CONTRACEPTION
     Dosage: N/A CONTINUOUS RELEASE INTRA-UTERINE
     Route: 015
     Dates: start: 20090505, end: 20090618

REACTIONS (15)
  - ABDOMINAL DISTENSION [None]
  - CARPAL TUNNEL SYNDROME [None]
  - CONDITION AGGRAVATED [None]
  - CRYING [None]
  - DISTURBANCE IN ATTENTION [None]
  - FATIGUE [None]
  - GRIP STRENGTH DECREASED [None]
  - HYPERTENSION [None]
  - HYPERVENTILATION [None]
  - LACTATION DISORDER [None]
  - LIBIDO DECREASED [None]
  - MENTAL DISORDER [None]
  - NERVE COMPRESSION [None]
  - PRURITUS [None]
  - RASH MACULAR [None]
